FAERS Safety Report 10480484 (Version 4)
Quarter: 2014Q4

REPORT INFORMATION
  Report Type: Report from Study
  Country: CA (occurrence: CA)
  Receive Date: 20140929
  Receipt Date: 20141111
  Transmission Date: 20150528
  Serious: Yes (Hospitalization)
  Sender: FDA-Public Use
  Company Number: CA-JNJFOC-20131006910

PATIENT
  Age: 74 Year
  Sex: Male
  Weight: 102.51 kg

DRUGS (1)
  1. STELARA [Suspect]
     Active Substance: USTEKINUMAB
     Indication: PSORIASIS
     Dosage: NOV 2012 INITIATED
     Route: 058
     Dates: start: 20120425

REACTIONS (4)
  - Cardiac failure [Recovered/Resolved]
  - Cardiac failure congestive [Recovered/Resolved]
  - Viral test positive [Unknown]
  - Enterobacter sepsis [Recovered/Resolved]

NARRATIVE: CASE EVENT DATE: 20130921
